FAERS Safety Report 9031341 (Version 1)
Quarter: 2013Q1

REPORT INFORMATION
  Report Type: Report from Study
  Country: DE (occurrence: DE)
  Receive Date: 20130124
  Receipt Date: 20130124
  Transmission Date: 20140127
  Serious: Yes (Hospitalization)
  Sender: FDA-Public Use
  Company Number: DE-SANOFI-AVENTIS-2013SA004742

PATIENT
  Age: 59 Year
  Sex: Male
  Weight: 102 kg

DRUGS (4)
  1. MULTAQ [Suspect]
     Indication: ATRIAL FIBRILLATION
     Route: 048
     Dates: start: 20120510
  2. BISOPROLOL HEMIFUMARATE [Concomitant]
     Dates: start: 201201
  3. VALSARTAN [Concomitant]
     Dates: start: 20120524
  4. PHENPROCOUMON [Concomitant]

REACTIONS (1)
  - Tachyarrhythmia [Recovered/Resolved]
